FAERS Safety Report 13799343 (Version 3)
Quarter: 2017Q3

REPORT INFORMATION
  Report Type: Spontaneous
  Country: CN (occurrence: CN)
  Receive Date: 20170727
  Receipt Date: 20170814
  Transmission Date: 20171127
  Serious: Yes (Other)
  Sender: FDA-Public Use
  Company Number: CN-PFIZER INC-2017322493

PATIENT
  Age: 51 Year
  Sex: Female

DRUGS (3)
  1. RECOMBINANT HUMAN INTERLEUKIN 21 [Concomitant]
     Indication: LIPOSARCOMA METASTATIC
     Dosage: UNK, PLEURAL CAVITY INFUSION
     Dates: start: 20160809
  2. DOXORUBICIN HCL [Suspect]
     Active Substance: DOXORUBICIN HYDROCHLORIDE
     Indication: LIPOSARCOMA METASTATIC
     Dosage: 40 MG, CYCLIC (DAY 1, EVERY 3 WEEKS)
     Dates: start: 20160809
  3. IFOSFAMIDE. [Suspect]
     Active Substance: IFOSFAMIDE
     Indication: LIPOSARCOMA METASTATIC
     Dosage: 2 G, CYCLIC (DAY 1 TO 3, EVERY 3 WEEKS)
     Dates: start: 20160809

REACTIONS (2)
  - Gastrointestinal disorder [Recovered/Resolved]
  - Haematotoxicity [Recovered/Resolved]

NARRATIVE: CASE EVENT DATE: 2016
